FAERS Safety Report 8499422-1 (Version None)
Quarter: 2012Q3

REPORT INFORMATION
  Report Type: 
  Country: None (occurrence: None)
  Receive Date: 20120710
  Receipt Date: 20120705
  Transmission Date: 20120928
  Serious: No
  Sender: FDA-Public Use
  Company Number: US-BAYER-2012-067856

PATIENT
  Sex: Female

DRUGS (1)
  1. MIRENA [Suspect]
     Indication: CONTRACEPTION
     Dosage: 20 MCG/24HR, CONT
     Route: 015
     Dates: start: 20120424

REACTIONS (4)
  - VAGINAL DISCHARGE [None]
  - VULVOVAGINAL PRURITUS [None]
  - COITAL BLEEDING [None]
  - VULVOVAGINAL BURNING SENSATION [None]
